FAERS Safety Report 24944270 (Version 3)
Quarter: 2025Q1

REPORT INFORMATION
  Report Type: Report from Study
  Country: CA (occurrence: CA)
  Receive Date: 20250208
  Receipt Date: 20250225
  Transmission Date: 20250409
  Serious: No
  Sender: ABBVIE
  Company Number: CA-ABBVIE-5934202

PATIENT
  Age: 72 Year
  Sex: Female

DRUGS (9)
  1. VYALEV [Suspect]
     Active Substance: FOSCARBIDOPA\FOSLEVODOPA
     Indication: Product used for unknown indication
     Route: 058
     Dates: start: 20240911
  2. VYALEV [Suspect]
     Active Substance: FOSCARBIDOPA\FOSLEVODOPA
     Route: 058
  3. DOMPERIDONE [Concomitant]
     Active Substance: DOMPERIDONE
     Indication: Product used for unknown indication
  4. SYNTHROID [Concomitant]
     Active Substance: LEVOTHYROXINE SODIUM
     Indication: Product used for unknown indication
  5. PRAMIPEXOLE [Concomitant]
     Active Substance: PRAMIPEXOLE
     Indication: Product used for unknown indication
  6. Entacopone [Concomitant]
     Indication: Product used for unknown indication
  7. CARBIDOPA LEVODOPA [Concomitant]
     Active Substance: CARBIDOPA\LEVODOPA
     Indication: Product used for unknown indication
     Dosage: 100/25 QHS,?CONTROLLED RELEASE
  8. CARBIDOPA LEVODOPA [Concomitant]
     Active Substance: CARBIDOPA\LEVODOPA
     Indication: Product used for unknown indication
     Dosage: 100/25 1 TAB
  9. AMANTADINE [Concomitant]
     Active Substance: AMANTADINE
     Indication: Product used for unknown indication

REACTIONS (35)
  - Skin infection [Not Recovered/Not Resolved]
  - Influenza [Unknown]
  - Cellulite [Unknown]
  - Skin induration [Unknown]
  - Injection site erythema [Unknown]
  - Dizziness [Recovered/Resolved]
  - Abdominal tenderness [Unknown]
  - Mobility decreased [Unknown]
  - Hypotension [Unknown]
  - Hyperhidrosis [Unknown]
  - Joint swelling [Unknown]
  - Head injury [Unknown]
  - Gastrointestinal disorder [Unknown]
  - Anxiety [Not Recovered/Not Resolved]
  - On and off phenomenon [Not Recovered/Not Resolved]
  - Panic attack [Unknown]
  - Infection [Not Recovered/Not Resolved]
  - Gait disturbance [Unknown]
  - Paranoia [Unknown]
  - COVID-19 [Unknown]
  - Freezing phenomenon [Recovering/Resolving]
  - Restless legs syndrome [Unknown]
  - Feeling abnormal [Unknown]
  - Joint swelling [Unknown]
  - Urinary tract infection [Unknown]
  - Rash macular [Unknown]
  - Emotional distress [Unknown]
  - Crying [Unknown]
  - Frustration tolerance decreased [Unknown]
  - Infusion site nodule [Unknown]
  - Tremor [Unknown]
  - Fall [Unknown]
  - Loss of personal independence in daily activities [Unknown]
  - Back pain [Unknown]
  - Fall [Unknown]

NARRATIVE: CASE EVENT DATE: 20240101
